FAERS Safety Report 5961298-1 (Version None)
Quarter: 2008Q4

REPORT INFORMATION
  Report Type: 
  Country: None (occurrence: None)
  Receive Date: 20081119
  Receipt Date: 20081107
  Transmission Date: 20090506
  Serious: Yes (Hospitalization)
  Sender: FDA-Public Use
  Company Number: 036436

PATIENT
  Age: 58 Year
  Sex: Male

DRUGS (4)
  1. ADDERALL 10 [Suspect]
     Indication: ATTENTION DEFICIT/HYPERACTIVITY DISORDER
  2. AMBIEN [Suspect]
     Dosage: PRN, ORAL
     Route: 048
  3. LUNESTA [Suspect]
     Indication: INSOMNIA
     Dosage: SEE IMAGE
     Route: 048
     Dates: start: 20050101
  4. FEXOFENADINE HCL [Concomitant]

REACTIONS (3)
  - INSOMNIA [None]
  - THROMBOSIS [None]
  - TONGUE ULCERATION [None]
